FAERS Safety Report 5251222-1 (Version None)
Quarter: 2007Q1

REPORT INFORMATION
  Report Type: 
  Country: None (occurrence: None)
  Receive Date: 20061201
  Receipt Date: 20060821
  Transmission Date: 20070707
  Serious: No
  Sender: FDA-Public Use
  Company Number: 2006PV019799

PATIENT
  Age: 55 Year
  Sex: Male
  Weight: 106.5953 kg

DRUGS (18)
  1. BYETTA [Suspect]
     Indication: DIABETES MELLITUS NON-INSULIN-DEPENDENT
     Dosage: SEE IMAGE
     Dates: start: 20060701, end: 20060814
  2. BYETTA [Suspect]
     Indication: DIABETES MELLITUS NON-INSULIN-DEPENDENT
     Dosage: SEE IMAGE
     Dates: start: 20060815
  3. METFORMIN HCL [Concomitant]
  4. ACTOS [Concomitant]
  5. LEVITRA [Concomitant]
  6. BUSPAR [Concomitant]
  7. EFFEXOR [Concomitant]
  8. LAMICTAL [Concomitant]
  9. WELLBUTRIN [Concomitant]
  10. CLONIDINE [Concomitant]
  11. LISINOPRIL [Concomitant]
  12. KLONOPIN [Concomitant]
  13. CLONAZEPAM [Concomitant]
  14. LUNESTA [Concomitant]
  15. DETROL [Concomitant]
  16. REQUIP [Concomitant]
  17. HYDROCODONE [Concomitant]
  18. CRESTOR [Concomitant]

REACTIONS (6)
  - CONDITION AGGRAVATED [None]
  - DRUG INEFFECTIVE [None]
  - DRY MOUTH [None]
  - FATIGUE [None]
  - NAUSEA [None]
  - SLUGGISHNESS [None]
